FAERS Safety Report 8077907-X (Version None)
Quarter: 2012Q1

REPORT INFORMATION
  Report Type: 
  Country: None (occurrence: None)
  Receive Date: 20120127
  Receipt Date: 20110103
  Transmission Date: 20120608
  Serious: No
  Sender: FDA-Public Use
  Company Number: US-ABBOTT-11P-163-0695205-00

PATIENT
  Sex: Female
  Weight: 77.18 kg

DRUGS (6)
  1. HUMIRA [Suspect]
     Indication: PSORIASIS
     Route: 058
     Dates: start: 20101101
  2. ALPRAZOLAM [Concomitant]
     Indication: ANXIETY
  3. TRIAMTERENE AND HYDROCHLOROTHIAZIDE [Concomitant]
     Indication: HYPERTENSION
     Dosage: 37.5/25MG DAILY
  4. ALPRAZOLAM [Concomitant]
     Indication: DEPRESSION
  5. PHENTERMINE [Concomitant]
     Indication: WEIGHT DECREASED
     Dates: end: 20101101
  6. VITAMIN D [Concomitant]
     Indication: VITAMIN D DEFICIENCY

REACTIONS (2)
  - PSORIASIS [None]
  - RASH [None]
